FAERS Safety Report 8544621-3 (Version None)
Quarter: 2012Q3

REPORT INFORMATION
  Report Type: 
  Country: None (occurrence: None)
  Receive Date: 20120717
  Receipt Date: 20120704
  Transmission Date: 20120928
  Serious: Yes (Hospitalization, Other)
  Sender: FDA-Public Use
  Company Number: AUR-APL-2012-02981

PATIENT
  Age: 72 Year
  Sex: Male
  Weight: 119.2 kg

DRUGS (26)
  1. METFORMIN HCL [Concomitant]
  2. ZOCOR [Concomitant]
  3. LASIX [Concomitant]
  4. CITALOPRAM HYDROBROMIDE [Concomitant]
  5. METOPROLOL TARTRATE [Suspect]
     Indication: PRODUCT USED FOR UNKNOWN INDICATION
     Dosage: (25 MG), UNKNOWN
  6. NEURONTIN [Concomitant]
  7. LISINOPRIL [Concomitant]
  8. TRIAMCINOLONE ACETONIDE [Concomitant]
  9. LOPRESSOR [Concomitant]
  10. COLCHICINE [Concomitant]
  11. CYANOCOBALAMIN [Concomitant]
  12. CELECOXIB [Suspect]
     Indication: OSTEOARTHRITIS
     Dosage: 80 MG (40 MG, 2 IN 1 D), ORAL
     Route: 048
     Dates: start: 20080716
  13. COLACE (DOCUSATE SODIUM) [Concomitant]
  14. CARDURA [Concomitant]
  15. NITROGLYCERIN [Concomitant]
  16. ARTIFICIAL TEARS (HYPROMELLOSE) [Concomitant]
  17. NEXIUM [Concomitant]
  18. PERCOCET [Concomitant]
  19. ALLOPURINOL [Concomitant]
  20. VITAMIN B12 [Concomitant]
  21. FERROUS SULFATE TAB [Concomitant]
  22. GLUCOTROL [Concomitant]
  23. TEMAZEPAM [Concomitant]
  24. ALBUTEROL [Concomitant]
  25. ABILIFY [Concomitant]
  26. FLUOCINOLONE ACETONIDE / KETOCAINE HYDROCHLORIDE (FLUOCINOLONE ACETONI [Concomitant]

REACTIONS (10)
  - CONDITION AGGRAVATED [None]
  - NEUROPATHY PERIPHERAL [None]
  - DIZZINESS [None]
  - ANGINA UNSTABLE [None]
  - RENAL FAILURE [None]
  - SOMNOLENCE [None]
  - HYPOTENSION [None]
  - GASTRIC ULCER [None]
  - CORONARY ARTERY DISEASE [None]
  - DEHYDRATION [None]
